FAERS Safety Report 7499669-7 (Version None)
Quarter: 2011Q2

REPORT INFORMATION
  Report Type: 
  Country: None (occurrence: None)
  Receive Date: 20110524
  Receipt Date: 20110511
  Transmission Date: 20111010
  Serious: Yes (Hospitalization)
  Sender: FDA-Public Use
  Company Number: JP-ROCHE-764297

PATIENT
  Sex: Female

DRUGS (10)
  1. ZOSYN [Concomitant]
     Route: 041
     Dates: start: 20110224, end: 20110225
  2. MUCOSTA [Concomitant]
     Dosage: FORM REPORTED AS PERORAL AGENT.
     Route: 048
     Dates: start: 20110308
  3. TOCILIZUMAB [Suspect]
     Indication: CASTLEMAN'S DISEASE
     Route: 041
     Dates: start: 20101125, end: 20101216
  4. TOCILIZUMAB [Suspect]
     Route: 041
     Dates: start: 20110127, end: 20110314
  5. PREDNISOLONE [Suspect]
     Indication: CASTLEMAN'S DISEASE
     Route: 048
  6. LANSOPRAZOLE [Concomitant]
     Dosage: PERORAL AGENT
     Route: 048
  7. PREDNISOLONE [Suspect]
     Route: 048
     Dates: start: 20110224, end: 20110224
  8. ONEALFA [Concomitant]
     Dosage: PERORAL AGENT
     Route: 048
  9. DEPAS [Concomitant]
     Dosage: PERORAL AGENT
     Route: 048
  10. TOCILIZUMAB [Suspect]
     Route: 041
     Dates: start: 20110113, end: 20110113

REACTIONS (6)
  - HYPONATRAEMIA [None]
  - HYDROCEPHALUS [None]
  - OSTEONECROSIS [None]
  - INFUSION RELATED REACTION [None]
  - MENINGITIS CRYPTOCOCCAL [None]
  - URINARY TRACT INFECTION [None]
